FAERS Safety Report 6127495-X (Version None)
Quarter: 2009Q1

REPORT INFORMATION
  Report Type: 
  Country: None (occurrence: None)
  Receive Date: 20090319
  Receipt Date: 20090305
  Transmission Date: 20090719
  Serious: Yes (Hospitalization)
  Sender: FDA-Public Use
  Company Number: 02100-JPN-06-0029

PATIENT
  Age: 66 Year
  Sex: Female

DRUGS (12)
  1. PLAVIX [Suspect]
     Indication: CEREBRAL INFARCTION
     Dosage: 75 MG, DAILY DOSE ORAL
     Route: 048
     Dates: start: 20060126, end: 20060207
  2. ASPIRIN [Concomitant]
  3. ASPIRIN [Concomitant]
  4. TOLTERODINE 1-TARTRATE (TOLTERODINE) [Concomitant]
  5. GINKGO BILOBA EXTRACT (GINKGO BILOBA EXTRACT) [Concomitant]
  6. TAMSULOSIN HCL (TAMSULOSIN) [Concomitant]
  7. MAGNESIUM OXIDE (MAGNESIUM OXIDE) [Concomitant]
  8. TEPRENONE (TEPRENONE) [Concomitant]
  9. NORTRIPTYLINE HCL [Concomitant]
  10. CITICOLINE (CITICOLINE) [Concomitant]
  11. SALINE (0.9% SODIUM CHLORIDE) (SALINE 0.9% SODIUM CHLORIDE)) [Concomitant]
  12. HYDROXYETHYL STARCH 130000/SODIUM CHLORIDE (HYDROXYETHYL STARCH 130000 [Concomitant]

REACTIONS (2)
  - BRAIN STEM INFARCTION [None]
  - VOMITING [None]
